FAERS Safety Report 16649321 (Version 1)
Quarter: 2019Q3

REPORT INFORMATION
  Report Type: Spontaneous
  Country: US (occurrence: US)
  Receive Date: 20190730
  Receipt Date: 20190730
  Transmission Date: 20191004
  Serious: Yes (Other)
  Sender: FDA-Public Use
  Company Number: US-PFIZER INC-2019308696

PATIENT
  Age: 68 Year
  Sex: Female
  Weight: 113.4 kg

DRUGS (1)
  1. PREPARATION H SUPPOSITORY [Suspect]
     Active Substance: COCOA BUTTER\PHENYLEPHRINE HYDROCHLORIDE
     Indication: HAEMORRHOIDS
     Dosage: UNK, AS NEEDED
     Route: 054

REACTIONS (9)
  - Haematochezia [Unknown]
  - Exposure via skin contact [Unknown]
  - Haemorrhoidal haemorrhage [Unknown]
  - Insomnia [Unknown]
  - Burning sensation [Unknown]
  - Product physical issue [Unknown]
  - Product administration error [Unknown]
  - Product storage error [Unknown]
  - Constipation [Unknown]

NARRATIVE: CASE EVENT DATE: 201907
